FAERS Safety Report 9848042 (Version 1)
Quarter: 2014Q1

REPORT INFORMATION
  Report Type: Spontaneous
  Country: US (occurrence: None)
  Receive Date: 20140123
  Receipt Date: 20140123
  Transmission Date: 20141002
  Serious: Yes (Hospitalization)
  Sender: FDA-Public Use
  Company Number: None

PATIENT
  Age: 55 Year
  Sex: Male

DRUGS (2)
  1. VANCOMYCIN [Suspect]
     Route: 042
     Dates: start: 20131128, end: 20140107
  2. PIPERACILLIN/TAZOBACTAM [Suspect]
     Dates: start: 20131128, end: 20140107

REACTIONS (5)
  - Rash [None]
  - Renal failure acute [None]
  - Tubulointerstitial nephritis [None]
  - Blood pressure systolic increased [None]
  - Renal tubular necrosis [None]
